FAERS Safety Report 8831981 (Version 3)
Quarter: 2014Q4

REPORT INFORMATION
  Report Type: Report from Study
  Country: RO (occurrence: RO)
  Receive Date: 20121009
  Receipt Date: 20141104
  Transmission Date: 20150529
  Serious: Yes (Life-Threatening, Hospitalization, Other)
  Sender: FDA-Public Use
  Company Number: RO-ROCHE-1140543

PATIENT
  Age: 57 Year
  Sex: Female
  Weight: 94 kg

DRUGS (1)
  1. RITUXIMAB [Suspect]
     Active Substance: RITUXIMAB
     Indication: RHEUMATOID ARTHRITIS
     Route: 042
     Dates: start: 20111216, end: 20120919

REACTIONS (8)
  - Illusion [Not Recovered/Not Resolved]
  - Confusional state [Not Recovered/Not Resolved]
  - Meningoencephalitis viral [Unknown]
  - Coma [Recovered/Resolved]
  - Progressive multifocal leukoencephalopathy [Unknown]
  - Memory impairment [Not Recovered/Not Resolved]
  - Encephalitis viral [Not Recovered/Not Resolved]
  - Retrograde amnesia [Recovering/Resolving]

NARRATIVE: CASE EVENT DATE: 20120912
